FAERS Safety Report 5671852-2 (Version None)
Quarter: 2008Q1

REPORT INFORMATION
  Report Type: 
  Country: None (occurrence: None)
  Receive Date: 20080317
  Receipt Date: 20080317
  Transmission Date: 20080703
  Serious: No
  Sender: FDA-Public Use
  Company Number: None

PATIENT
  Age: 50 Year
  Sex: Female
  Weight: 170.5525 kg

DRUGS (2)
  1. FLUCONAZOLE 100 MG KING AND GLEMARK [Suspect]
     Indication: SYSTEMIC CANDIDA
     Dosage: 100 MG DAILY PO
     Route: 048
     Dates: start: 20071010, end: 20080314
  2. FLUCONAZOLE  200 MG  KING AND GLENMARK [Suspect]
     Indication: SYSTEMIC CANDIDA
     Dosage: 200 MG DAILY PO
     Route: 048

REACTIONS (2)
  - PHARMACEUTICAL PRODUCT COMPLAINT [None]
  - THERAPEUTIC RESPONSE UNEXPECTED WITH DRUG SUBSTITUTION [None]
